FAERS Safety Report 10803643 (Version 1)
Quarter: 2015Q1

REPORT INFORMATION
  Report Type: Spontaneous
  Country: US (occurrence: US)
  Receive Date: 20150217
  Receipt Date: 20150217
  Transmission Date: 20150721
  Serious: No
  Sender: FDA-Public Use
  Company Number: US-SHIRE-US201501265

PATIENT
  Sex: Female

DRUGS (2)
  1. PENTASA [Suspect]
     Active Substance: MESALAMINE
     Indication: CROHN^S DISEASE
     Dosage: 2 DF (2 CAPSULES), 3X/DAY:TID
     Route: 048
  2. PENTASA [Suspect]
     Active Substance: MESALAMINE
     Dosage: 2 DF (2 CAPSULES), 4X/DAY:QID
     Route: 048

REACTIONS (3)
  - Constipation [Unknown]
  - Product use issue [Recovered/Resolved]
  - Drug dose omission [Unknown]
